FAERS Safety Report 9350676 (Version 2)
Quarter: 2013Q3

REPORT INFORMATION
  Report Type: Report from Study
  Country: US (occurrence: US)
  Receive Date: 20130617
  Receipt Date: 20130815
  Transmission Date: 20140515
  Serious: Yes (Death, Hospitalization)
  Sender: FDA-Public Use
  Company Number: PHEH2013US012956

PATIENT
  Age: 87 Year
  Sex: Male
  Weight: 97.8 kg

DRUGS (7)
  1. GLEEVEC [Suspect]
     Indication: CHRONIC MYELOID LEUKAEMIA
     Dosage: 400 MG, QD
     Route: 048
     Dates: start: 20130226, end: 20130404
  2. GLEEVEC [Suspect]
     Dosage: 400 MG, 3XWK
     Route: 048
     Dates: start: 20130429, end: 20130513
  3. METFORMIN [Concomitant]
     Indication: DIABETES MELLITUS
     Dosage: 500 MG, QD
     Route: 048
  4. SIMVASTATIN [Concomitant]
     Indication: BLOOD CHOLESTEROL INCREASED
     Dosage: 40 UKN, UNK
     Route: 048
  5. CAUMADIN [Concomitant]
     Dosage: 2.5 MG, UNK
     Route: 048
  6. ATENOLOL [Concomitant]
     Indication: BLOOD PRESSURE ABNORMAL
     Dosage: 25 MG, QD
     Route: 048
  7. KEPPRA [Concomitant]
     Indication: CONVULSION
     Dosage: 500 MG, BID
     Route: 048

REACTIONS (5)
  - Death [Fatal]
  - Asthenia [Unknown]
  - Urinary tract infection [Unknown]
  - Mental status changes [Unknown]
  - Pancytopenia [Unknown]
